FAERS Safety Report 20215550 (Version 3)
Quarter: 2022Q1

REPORT INFORMATION
  Report Type: Report from Study
  Country: US (occurrence: None)
  Receive Date: 20211222
  Receipt Date: 20220121
  Transmission Date: 20220423
  Serious: Yes (Hospitalization, Other)
  Sender: FDA-Public Use
  Company Number: US-ROCHE-2980998

PATIENT
  Age: 56 Year
  Sex: Female
  Weight: 56 kg

DRUGS (8)
  1. ATEZOLIZUMAB [Suspect]
     Active Substance: ATEZOLIZUMAB
     Indication: Malignant melanoma
     Route: 041
     Dates: start: 20211022
  2. TIRAGOLUMAB [Suspect]
     Active Substance: TIRAGOLUMAB
     Indication: Malignant melanoma
     Route: 042
     Dates: start: 20211022
  3. TYLENOL [Concomitant]
     Active Substance: ACETAMINOPHEN
  4. PREDNISONE [Concomitant]
     Active Substance: PREDNISONE
  5. PROTONIX [Concomitant]
     Active Substance: PANTOPRAZOLE SODIUM
  6. LEVOTHYROXINE [Concomitant]
     Active Substance: LEVOTHYROXINE
  7. BACTRIM [Concomitant]
     Active Substance: SULFAMETHOXAZOLE\TRIMETHOPRIM
  8. CYCLOPENTOLATE [Concomitant]
     Active Substance: CYCLOPENTOLATE

REACTIONS (3)
  - Cytokine release syndrome [Recovered/Resolved]
  - Visual impairment [Unknown]
  - Uveitis [Recovering/Resolving]

NARRATIVE: CASE EVENT DATE: 20211210
